FAERS Safety Report 9249298 (Version 4)
Quarter: 2015Q2

REPORT INFORMATION
  Report Type: Spontaneous
  Country: US (occurrence: US)
  Receive Date: 20130423
  Receipt Date: 20150529
  Transmission Date: 20150821
  Serious: Yes (Hospitalization, Other)
  Sender: FDA-Public Use
  Company Number: US-009507513-1304USA010122

PATIENT
  Sex: Male

DRUGS (1)
  1. PROPECIA [Suspect]
     Active Substance: FINASTERIDE
     Indication: ALOPECIA
     Dosage: 1 MG, QD
     Route: 048
     Dates: start: 19990824, end: 201007

REACTIONS (29)
  - Crying [Unknown]
  - Epididymal cyst [Unknown]
  - Foot fracture [Unknown]
  - Partner stress [Unknown]
  - Cough [Unknown]
  - Cardiac murmur [Unknown]
  - Arthropathy [Unknown]
  - Dental operation [Unknown]
  - Cognitive disorder [Unknown]
  - Depression [Unknown]
  - Gynaecomastia [Unknown]
  - Blood testosterone decreased [Unknown]
  - Malaise [Unknown]
  - Depression [Unknown]
  - Semen volume decreased [Unknown]
  - Sexual dysfunction [Unknown]
  - Genital atrophy [Unknown]
  - Hormone level abnormal [Unknown]
  - Fatigue [Unknown]
  - Partner stress [Unknown]
  - Varicocele [Unknown]
  - Loss of libido [Unknown]
  - Infertility [Unknown]
  - Umbilical hernia [Unknown]
  - Scrotal pain [Unknown]
  - Semen viscosity decreased [Unknown]
  - Anxiety [Unknown]
  - Erectile dysfunction [Unknown]
  - Knee arthroplasty [Unknown]

NARRATIVE: CASE EVENT DATE: 1999
